FAERS Safety Report 5843649-1 (Version None)
Quarter: 2008Q3

REPORT INFORMATION
  Report Type: 
  Country: None (occurrence: None)
  Receive Date: 20080813
  Receipt Date: 20080806
  Transmission Date: 20090109
  Serious: Yes (Other)
  Sender: FDA-Public Use
  Company Number: US-ASTRAZENECA-2008UW15622

PATIENT
  Age: 45 Year
  Sex: Female
  Weight: 91.6 kg

DRUGS (10)
  1. PRILOSEC [Suspect]
     Indication: GASTROOESOPHAGEAL REFLUX DISEASE
     Route: 048
     Dates: end: 20051230
  2. SEROQUEL [Interacting]
     Route: 048
  3. POTASSIUM CHLORIDE [Interacting]
  4. FUROSEMIDE [Interacting]
  5. MECLIZINE [Interacting]
  6. ERYTHROMYCIN [Interacting]
  7. THYROID TAB [Interacting]
  8. NASONEX [Interacting]
  9. LORAZEPAM [Interacting]
  10. TOPAMAX [Interacting]
     Indication: CONVULSION

REACTIONS (2)
  - DRUG INTERACTION [None]
  - GRAND MAL CONVULSION [None]
